FAERS Safety Report 25350839 (Version 2)
Quarter: 2025Q3

REPORT INFORMATION
  Report Type: Report from Study
  Country: US (occurrence: US)
  Receive Date: 20250523
  Receipt Date: 20250723
  Transmission Date: 20251021
  Serious: Yes (Other)
  Sender: ACADIA PHARMACEUTICALS
  Company Number: US-ACADIA PHARMACEUTICALS INC.-ACA-2025-PIM-005988

PATIENT
  Sex: Male

DRUGS (15)
  1. NUPLAZID [Suspect]
     Active Substance: PIMAVANSERIN TARTRATE
     Indication: Parkinson^s disease
     Dosage: 34 MILLIGRAM, QD
     Route: 048
     Dates: start: 20210319, end: 20250717
  2. QUETIAPINE [Concomitant]
     Active Substance: QUETIAPINE
  3. ENTACAPONE [Concomitant]
     Active Substance: ENTACAPONE
  4. MAGNESIUM [Concomitant]
     Active Substance: MAGNESIUM
  5. ASPIRIN [Concomitant]
     Active Substance: ASPIRIN
  6. IBUPROFEN [Concomitant]
     Active Substance: IBUPROFEN
  7. CARBIDOPA\LEVODOPA [Concomitant]
     Active Substance: CARBIDOPA\LEVODOPA
  8. CARBIDOPA\LEVODOPA [Concomitant]
     Active Substance: CARBIDOPA\LEVODOPA
  9. CITALOPRAM [Concomitant]
     Active Substance: CITALOPRAM
  10. DICLOFENAC SODIUM [Concomitant]
     Active Substance: DICLOFENAC SODIUM
  11. LOSARTAN [Concomitant]
     Active Substance: LOSARTAN
  12. RIVASTIGMINE [Concomitant]
     Active Substance: RIVASTIGMINE
  13. ROPINIROLE [Concomitant]
     Active Substance: ROPINIROLE
  14. MIDODRINE [Concomitant]
     Active Substance: MIDODRINE
  15. FLUDROCORTISONE [Concomitant]
     Active Substance: FLUDROCORTISONE

REACTIONS (2)
  - Parkinson^s disease [Not Recovered/Not Resolved]
  - Hallucination [Not Recovered/Not Resolved]
